FAERS Safety Report 20480278 (Version 1)
Quarter: 2022Q1

REPORT INFORMATION
  Report Type: Spontaneous
  Country: US (occurrence: US)
  Receive Date: 20220216
  Receipt Date: 20220216
  Transmission Date: 20220423
  Serious: Yes (Other)
  Sender: FDA-Public Use
  Company Number: US-PFIZER INC-202200205265

PATIENT
  Age: 80 Year
  Sex: Female
  Weight: 61.23 kg

DRUGS (1)
  1. IBRANCE [Suspect]
     Active Substance: PALBOCICLIB
     Indication: Hormone receptor positive breast cancer
     Dosage: 125 MG, CYCLIC(ONCE DAILY FOR 21 DAYS AND THEN 12 DAYS OFF)
     Dates: start: 202008, end: 20220203

REACTIONS (13)
  - Neuropathy peripheral [Not Recovered/Not Resolved]
  - Body height decreased [Unknown]
  - Musculoskeletal disorder [Unknown]
  - Discomfort [Unknown]
  - Pain [Not Recovered/Not Resolved]
  - Insomnia [Unknown]
  - Restless legs syndrome [Unknown]
  - Osteopenia [Unknown]
  - Neoplasm progression [Unknown]
  - Loss of personal independence in daily activities [Unknown]
  - White blood cell count abnormal [Unknown]
  - Red blood cell count abnormal [Unknown]
  - Visual impairment [Unknown]

NARRATIVE: CASE EVENT DATE: 20210101
